FAERS Safety Report 24803709 (Version 1)
Quarter: 2025Q1

REPORT INFORMATION
  Report Type: Spontaneous
  Country: US (occurrence: US)
  Receive Date: 20250103
  Receipt Date: 20250103
  Transmission Date: 20250408
  Serious: Yes (Hospitalization, Other)
  Sender: UCB
  Company Number: US-UCBSA-2025000013

PATIENT
  Age: 55 Year
  Sex: Female

DRUGS (4)
  1. LEVETIRACETAM [Suspect]
     Active Substance: LEVETIRACETAM
     Indication: Electrocardiogram delta waves abnormal
  2. LEVETIRACETAM [Suspect]
     Active Substance: LEVETIRACETAM
     Indication: Off label use
  3. ASPIRIN [Concomitant]
     Active Substance: ASPIRIN
     Indication: Lacunar infarction
  4. CLOPIDOGREL [Concomitant]
     Active Substance: CLOPIDOGREL BISULFATE
     Indication: Lacunar infarction

REACTIONS (3)
  - Stevens-Johnson syndrome [Recovered/Resolved]
  - Drug-induced liver injury [Recovered/Resolved]
  - Off label use [Unknown]
